FAERS Safety Report 25841799 (Version 3)
Quarter: 2025Q4

REPORT INFORMATION
  Report Type: Spontaneous
  Country: BR (occurrence: BR)
  Receive Date: 20250924
  Receipt Date: 20251024
  Transmission Date: 20260118
  Serious: No
  Sender: NOVO NORDISK
  Company Number: BR-NOVOPROD-1524836

PATIENT
  Age: 37 Year
  Sex: Female
  Weight: 60.1 kg

DRUGS (9)
  1. DAPAGLIFLOZIN [Concomitant]
     Active Substance: DAPAGLIFLOZIN
     Indication: Weight control
     Dosage: 10 MG
  2. ELANI 28 [Concomitant]
     Indication: Weight control
     Dosage: UNK
  3. EZETIMIBE\ROSUVASTATIN CALCIUM [Concomitant]
     Active Substance: EZETIMIBE\ROSUVASTATIN CALCIUM
     Indication: Product used for unknown indication
     Dosage: 10 + 10MG
  4. PURAN [Concomitant]
     Active Substance: LEVOTHYROXINE SODIUM
     Indication: Weight control
     Dosage: 50 ?G
  5. WEGOVY [Suspect]
     Active Substance: SEMAGLUTIDE
     Dosage: 1.7 MG, QW
  6. WEGOVY [Suspect]
     Active Substance: SEMAGLUTIDE
     Dosage: 1 MG, QW
     Dates: start: 20250130
  7. WEGOVY [Suspect]
     Active Substance: SEMAGLUTIDE
     Indication: Hepatic cirrhosis
     Dosage: 0.5 MG, QW
     Dates: start: 202412, end: 202501
  8. WEGOVY [Suspect]
     Active Substance: SEMAGLUTIDE
     Dosage: 2.4 MG, QW
  9. WEGOVY [Suspect]
     Active Substance: SEMAGLUTIDE
     Indication: Overweight
     Dosage: 0.25 MG, QW
     Dates: start: 20241128, end: 202412

REACTIONS (2)
  - Nausea [Recovered/Resolved]
  - Constipation [Recovered/Resolved]

NARRATIVE: CASE EVENT DATE: 20241130
